FAERS Safety Report 24758169 (Version 1)
Quarter: 2024Q4

REPORT INFORMATION
  Report Type: Report from Study
  Country: GB (occurrence: GB)
  Receive Date: 20241220
  Receipt Date: 20241220
  Transmission Date: 20250114
  Serious: Yes (Other)
  Sender: EMD SERONO INC
  Company Number: GB-Merck Healthcare KGaA-2023468665

PATIENT
  Sex: Female

DRUGS (4)
  1. MAVENCLAD [Suspect]
     Active Substance: CLADRIBINE
     Indication: Multiple sclerosis
     Dosage: YEAR ONE WEEK ONE THERAPY. 2 TABLETS ON DAY ONE AND ONE TABLET ON DAYS 2 TO 5.
     Dates: start: 20230724
  2. MAVENCLAD [Suspect]
     Active Substance: CLADRIBINE
     Dosage: YEAR ONE WEEK 5 THERAPY. 2 TABLETS ON DAY ONE AND ONE TABLET ON DAYS 2 TO 5.
     Dates: start: 20230821
  3. MAVENCLAD [Suspect]
     Active Substance: CLADRIBINE
     Dosage: YEAR 2 WEEK 1 THERAPY. 2 TABLETS ON DAY ONE AND ONE TABLET ON DAYS 2 TO 5.
     Dates: start: 20240812, end: 20240816
  4. MAVENCLAD [Suspect]
     Active Substance: CLADRIBINE
     Dosage: YEAR 2 WEEK 5THERAPY. 2 TABLETS ON DAY ONE AND ONE TABLET ON DAYS 2 TO 5.
     Dates: start: 20240909

REACTIONS (4)
  - Lower respiratory tract infection [Unknown]
  - Lymphocyte count decreased [Unknown]
  - Nasopharyngitis [Unknown]
  - Infection [Unknown]
